FAERS Safety Report 5193254-8 (Version None)
Quarter: 2006Q4

REPORT INFORMATION
  Report Type: 
  Country: None (occurrence: None)
  Receive Date: 20061228
  Receipt Date: 20060801
  Transmission Date: 20070319
  Serious: No
  Sender: FDA-Public Use
  Company Number: US-GLAXOSMITHKLINE-A0614426A

PATIENT
  Sex: Male

DRUGS (6)
  1. AVODART [Suspect]
     Indication: BENIGN PROSTATIC HYPERPLASIA
     Dosage: .5MG PER DAY
     Route: 048
     Dates: start: 20060501
  2. DIOVAN [Concomitant]
  3. VERAPAMIL [Concomitant]
  4. LANTUS [Concomitant]
  5. ZETIA [Concomitant]
  6. PRAVACHOL [Concomitant]

REACTIONS (2)
  - DIZZINESS [None]
  - DRUG INEFFECTIVE [None]
